FAERS Safety Report 15453118 (Version 1)
Quarter: 2018Q4

REPORT INFORMATION
  Report Type: Spontaneous
  Country: ES (occurrence: ES)
  Receive Date: 20181001
  Receipt Date: 20181001
  Transmission Date: 20190204
  Serious: Yes (Hospitalization, Other)
  Sender: FDA-Public Use
  Company Number: ES-SA-2018SA264706

PATIENT
  Age: 61 Year
  Sex: Female

DRUGS (16)
  1. FOLINIC ACID [Suspect]
     Active Substance: LEUCOVORIN
     Indication: METASTASES TO LIVER
     Dosage: UNK
     Route: 065
     Dates: start: 20170711, end: 20180425
  2. OXALIPLATIN. [Suspect]
     Active Substance: OXALIPLATIN
     Dosage: UNK
     Dates: start: 20170125, end: 20170125
  3. IRINOTECAN [Suspect]
     Active Substance: IRINOTECAN
     Indication: LARGE INTESTINE PERFORATION
  4. FOLINIC ACID [Suspect]
     Active Substance: LEUCOVORIN
     Indication: LARGE INTESTINE PERFORATION
     Dosage: UNK
     Dates: start: 20160713, end: 20160713
  5. CAPECITABINE. [Suspect]
     Active Substance: CAPECITABINE
     Indication: METASTASES TO LIVER
  6. CAPECITABINE. [Suspect]
     Active Substance: CAPECITABINE
     Indication: LARGE INTESTINE PERFORATION
  7. BEVACIZUMAB. [Suspect]
     Active Substance: BEVACIZUMAB
     Indication: LARGE INTESTINE PERFORATION
  8. OXALIPLATIN. [Suspect]
     Active Substance: OXALIPLATIN
     Indication: LARGE INTESTINE PERFORATION
     Dosage: UNK
  9. OXALIPLATIN. [Suspect]
     Active Substance: OXALIPLATIN
     Dosage: UNK
     Dates: start: 20160713, end: 20160713
  10. ZALTRAP [Suspect]
     Active Substance: ZIV-AFLIBERCEPT
     Indication: LARGE INTESTINE PERFORATION
  11. OXALIPLATIN. [Suspect]
     Active Substance: OXALIPLATIN
     Indication: METASTASES TO LIVER
     Dosage: UNK
     Dates: start: 20141223, end: 20141223
  12. ZALTRAP [Suspect]
     Active Substance: ZIV-AFLIBERCEPT
     Indication: METASTASES TO LIVER
     Dosage: UNK
     Route: 065
     Dates: start: 20170711, end: 20180425
  13. FLUOROURACIL. [Suspect]
     Active Substance: FLUOROURACIL
     Indication: METASTASES TO LIVER
     Dosage: UNK
     Route: 065
     Dates: start: 20170711, end: 20180425
  14. FLUOROURACIL. [Suspect]
     Active Substance: FLUOROURACIL
     Indication: LARGE INTESTINE PERFORATION
  15. IRINOTECAN [Suspect]
     Active Substance: IRINOTECAN
     Indication: METASTASES TO LIVER
     Dosage: UNK
     Route: 065
     Dates: start: 20170711, end: 20180425
  16. BEVACIZUMAB. [Suspect]
     Active Substance: BEVACIZUMAB
     Indication: METASTASES TO LIVER
     Dosage: UNK
     Dates: start: 20160713, end: 20160713

REACTIONS (7)
  - Metastases to liver [Unknown]
  - Neutropenia [Unknown]
  - Neurotoxicity [Not Recovered/Not Resolved]
  - Hypersensitivity [Unknown]
  - Asthenia [Unknown]
  - Neurotoxicity [Unknown]
  - Metastatic neoplasm [Unknown]
